FAERS Safety Report 5389077-7 (Version None)
Quarter: 2007Q3

REPORT INFORMATION
  Report Type: 
  Country: None (occurrence: None)
  Receive Date: 20070713
  Receipt Date: 20070706
  Transmission Date: 20080115
  Serious: Yes (Life-Threatening, Hospitalization)
  Sender: FDA-Public Use
  Company Number: 16926

PATIENT
  Age: 17 Year
  Sex: Male

DRUGS (8)
  1. VINCRISTINE [Suspect]
     Indication: B-CELL TYPE ACUTE LEUKAEMIA
  2. DOXORUBICIN HCL [Suspect]
     Indication: B-CELL TYPE ACUTE LEUKAEMIA
  3. DEXAMETHASONE 0.5MG TAB [Suspect]
     Indication: B-CELL TYPE ACUTE LEUKAEMIA
  4. POLYETHYLENE GLYCOL-ASPARAGINASE [Suspect]
     Indication: B-CELL TYPE ACUTE LEUKAEMIA
  5. OPIATES [Suspect]
     Indication: ANALGESIA
  6. RANITIDINE HCL [Concomitant]
  7. MAXIPIME. MFR: BRISTOL-MYERS SQUIBB [Concomitant]
  8. TOBRAMYCIN [Concomitant]

REACTIONS (11)
  - ASCITES [None]
  - BACTERIAL INFECTION [None]
  - DIALYSIS [None]
  - DIVERTICULAR PERFORATION [None]
  - ESCHERICHIA INFECTION [None]
  - ILEUS [None]
  - MUCOSAL INFLAMMATION [None]
  - NEUTROPENIA [None]
  - PNEUMOPERITONEUM [None]
  - SEPSIS [None]
  - VITELLO-INTESTINAL DUCT REMNANT [None]
